FAERS Safety Report 6403107-2 (Version None)
Quarter: 2009Q4

REPORT INFORMATION
  Report Type: 
  Country: None (occurrence: None)
  Receive Date: 20091016
  Receipt Date: 20091009
  Transmission Date: 20100525
  Serious: Yes (Hospitalization)
  Sender: FDA-Public Use
  Company Number: PHHO2006DE15959

PATIENT
  Sex: Female

DRUGS (4)
  1. RAD 666 RAD+TAB [Suspect]
     Indication: RENAL TRANSPLANT
     Dosage: 0.75 MG, BID
     Route: 048
     Dates: start: 20060911
  2. RAD 666 RAD+TAB [Suspect]
     Dosage: 2 MG, BID
     Route: 048
     Dates: start: 20061017, end: 20061023
  3. RAD 666 RAD+TAB [Suspect]
     Dosage: 2 MG/DAILY
     Route: 048
     Dates: start: 20061023
  4. MYFORTIC [Concomitant]

REACTIONS (5)
  - ESCHERICHIA INFECTION [None]
  - KLEBSIELLA INFECTION [None]
  - PNEUMONIA [None]
  - PYREXIA [None]
  - URINARY TRACT INFECTION [None]
